FAERS Safety Report 22069672 (Version 2)
Quarter: 2023Q2

REPORT INFORMATION
  Report Type: Spontaneous
  Country: MX (occurrence: MX)
  Receive Date: 20230307
  Receipt Date: 20230406
  Transmission Date: 20230721
  Serious: Yes (Death, Other)
  Sender: FDA-Public Use
  Company Number: MX-PFIZER INC-PV202300043300

PATIENT
  Sex: Male

DRUGS (1)
  1. IXIFI [Suspect]
     Active Substance: INFLIXIMAB-QBTX
     Indication: Crohn^s disease
     Dosage: UNK

REACTIONS (1)
  - Tuberculosis gastrointestinal [Fatal]
